FAERS Safety Report 8792521 (Version 2)
Quarter: 2012Q4

REPORT INFORMATION
  Report Type: 
  Country: US (occurrence: US)
  Receive Date: 20120918
  Receipt Date: 20120928
  Transmission Date: 20130627
  Serious: Yes (Death)
  Sender: FDA-Public Use
  Company Number: US-ROCHE-1129290

PATIENT
  Age: 81 Year
  Sex: Female

DRUGS (4)
  1. AVASTIN [Suspect]
     Indication: OVARIAN CANCER
     Route: 042
     Dates: start: 20080523, end: 20080815
  2. AVASTIN [Suspect]
     Indication: MALIGNANT NEOPLASM OF UTERINE ADNEXA
  3. AVASTIN [Suspect]
     Indication: LUNG NEOPLASM MALIGNANT
  4. AVASTIN [Suspect]
     Indication: HEPATIC NEOPLASM MALIGNANT

REACTIONS (5)
  - Disease progression [Fatal]
  - Vaginal cancer [Fatal]
  - Renal failure [Fatal]
  - Chest pain [Unknown]
  - Confusional state [Unknown]
